FAERS Safety Report 15643202 (Version 1)
Quarter: 2018Q4

REPORT INFORMATION
  Report Type: Spontaneous
  Country: JP (occurrence: JP)
  Receive Date: 20181121
  Receipt Date: 20181121
  Transmission Date: 20190205
  Serious: Yes (Hospitalization, Other)
  Sender: FDA-Public Use
  Company Number: PHHY2018JP157597

PATIENT
  Age: 86 Year
  Sex: Male

DRUGS (1)
  1. RIVASTACH [Suspect]
     Active Substance: RIVASTIGMINE
     Indication: DEMENTIA ALZHEIMER^S TYPE
     Dosage: 0.5 MG, QD (RIVASTACH PATCH 4.5 MG, PATCH 2.5 (CM2) HAD BEEN USED CUTTING INTO 3 (1.5 MG))
     Route: 062

REACTIONS (2)
  - Deep vein thrombosis [Unknown]
  - Wrong technique in product usage process [Unknown]
